FAERS Safety Report 21740539 (Version 1)
Quarter: 2022Q4

REPORT INFORMATION
  Report Type: Spontaneous
  Country: US (occurrence: US)
  Receive Date: 20221216
  Receipt Date: 20221216
  Transmission Date: 20230113
  Serious: Yes (Hospitalization, Other)
  Sender: FDA-Public Use
  Company Number: US-ELI_LILLY_AND_COMPANY-US202212004342

PATIENT
  Age: 73 Year
  Sex: Female

DRUGS (2)
  1. GEMZAR [Suspect]
     Active Substance: GEMCITABINE HYDROCHLORIDE
     Indication: Pancreatic carcinoma
     Dosage: 600 MG/M2, WEEKLY (1/W)
     Route: 042
     Dates: start: 20220624
  2. ABRAXANE [Suspect]
     Active Substance: PACLITAXEL
     Indication: Pancreatic carcinoma
     Dosage: 75 MG/M2, WEEKLY (1/W)
     Route: 042
     Dates: start: 20220624

REACTIONS (7)
  - Neutropenic sepsis [Recovered/Resolved]
  - Thrombocytopenia [Unknown]
  - Incontinence [Unknown]
  - Fatigue [Unknown]
  - Rash maculo-papular [Unknown]
  - Anaemia [Unknown]
  - Neutropenia [Unknown]

NARRATIVE: CASE EVENT DATE: 20220708
